FAERS Safety Report 22275407 (Version 1)
Quarter: 2023Q2

REPORT INFORMATION
  Report Type: Spontaneous
  Country: US (occurrence: None)
  Receive Date: 20230502
  Receipt Date: 20230502
  Transmission Date: 20230722
  Serious: Yes (Hospitalization)
  Sender: FDA-Public Use
  Company Number: None

PATIENT
  Age: 69 Year
  Sex: Male
  Weight: 72.1 kg

DRUGS (1)
  1. CISPLATIN [Suspect]
     Active Substance: CISPLATIN
     Dates: end: 20230322

REACTIONS (15)
  - Dysphagia [None]
  - Diarrhoea [None]
  - Decreased appetite [None]
  - Anorectal infection [None]
  - Anaemia [None]
  - Hypermagnesaemia [None]
  - Stomatitis [None]
  - Oropharyngeal pain [None]
  - Hypernatraemia [None]
  - Rectal haemorrhage [None]
  - Upper gastrointestinal haemorrhage [None]
  - Aphasia [None]
  - Asthenia [None]
  - Dizziness [None]
  - Fluid intake reduced [None]

NARRATIVE: CASE EVENT DATE: 20230401
